FAERS Safety Report 6382625-X (Version None)
Quarter: 2009Q3

REPORT INFORMATION
  Report Type: 
  Country: None (occurrence: None)
  Receive Date: 20090928
  Receipt Date: 20090928
  Transmission Date: 20100115
  Serious: Yes (Other)
  Sender: FDA-Public Use
  Company Number: None

PATIENT
  Sex: Male
  Weight: 87.7 kg

DRUGS (2)
  1. LEVAQUIN [Suspect]
     Indication: ACUTE SINUSITIS
     Dosage: 750 MG QD ORALLY
     Route: 048
     Dates: start: 20090917
  2. LEVAQUIN [Suspect]
     Indication: ACUTE SINUSITIS
     Dosage: 750 MG QD ORALLY
     Route: 048
     Dates: start: 20090921

REACTIONS (3)
  - DYSPHAGIA [None]
  - SPEECH DISORDER [None]
  - TONGUE PARALYSIS [None]
